FAERS Safety Report 24167669 (Version 1)
Quarter: 2024Q3

REPORT INFORMATION
  Report Type: Spontaneous
  Country: US (occurrence: None)
  Receive Date: 20240801
  Receipt Date: 20240801
  Transmission Date: 20241017
  Serious: Yes (unspecified)
  Sender: Public
  Company Number: None

PATIENT
  Age: 38 Year
  Sex: Female
  Weight: 57.1 kg

DRUGS (1)
  1. FERRLECIT [Suspect]
     Active Substance: SODIUM FERRIC GLUCONATE COMPLEX
     Route: 041

REACTIONS (7)
  - Infusion related reaction [None]
  - Feeling abnormal [None]
  - Palpitations [None]
  - Dizziness [None]
  - Heart rate increased [None]
  - Abdominal pain upper [None]
  - Drug hypersensitivity [None]

NARRATIVE: CASE EVENT DATE: 20240708
